FAERS Safety Report 6383858-9 (Version None)
Quarter: 2009Q4

REPORT INFORMATION
  Report Type: 
  Country: None (occurrence: None)
  Receive Date: 20091001
  Receipt Date: 20090921
  Transmission Date: 20100525
  Serious: Yes (Hospitalization)
  Sender: FDA-Public Use
  Company Number: FR-BAYER-200933214GPV

PATIENT
  Age: 62 Year
  Sex: Male

DRUGS (3)
  1. FLUDARA [Suspect]
     Indication: CORD BLOOD TRANSPLANT THERAPY
     Dosage: TOTAL DAILY DOSE: 80 MG
     Route: 042
     Dates: start: 20090501, end: 20090505
  2. ENDOXAN [Suspect]
     Indication: CORD BLOOD TRANSPLANT THERAPY
     Dosage: TOTAL DAILY DOSE: 4.9 G
     Route: 042
     Dates: start: 20090501, end: 20090501
  3. NEORAL [Suspect]
     Indication: CORD BLOOD TRANSPLANT THERAPY
     Dosage: TOTAL DAILY DOSE: 100 MG
     Route: 048
     Dates: start: 20090503, end: 20090507

REACTIONS (2)
  - CONFUSIONAL STATE [None]
  - EXTRAPYRAMIDAL DISORDER [None]
